FAERS Safety Report 8303017-X (Version None)
Quarter: 2012Q2

REPORT INFORMATION
  Report Type: 
  Country: None (occurrence: None)
  Receive Date: 20120421
  Receipt Date: 20120413
  Transmission Date: 20120825
  Serious: Yes (Hospitalization, Other)
  Sender: FDA-Public Use
  Company Number: JP-VERTEX PHARMACEUTICALS INC.-AE-2012-005499

PATIENT
  Age: 51 Year
  Sex: Male

DRUGS (9)
  1. TELAVIC (TELAPREVIR) [Suspect]
     Route: 048
     Dates: start: 20120308
  2. RIBAVIRIN [Concomitant]
     Route: 048
     Dates: start: 20120308
  3. PEGINTERFERON ALFA-2B [Concomitant]
     Route: 051
     Dates: start: 20120216
  4. NEO-MERCAZOLE TAB [Concomitant]
     Route: 048
  5. METFORMIN HCL [Concomitant]
     Route: 048
  6. TELAVIC (TELAPREVIR) [Suspect]
     Route: 048
     Dates: start: 20120301, end: 20120307
  7. TELAVIC (TELAPREVIR) [Suspect]
     Indication: HEPATITIS C
     Route: 048
     Dates: start: 20120209, end: 20120229
  8. RIBAVIRIN [Concomitant]
     Indication: HEPATITIS C
     Route: 048
     Dates: start: 20120209, end: 20120307
  9. PEGINTERFERON ALFA-2B [Concomitant]
     Indication: HEPATITIS C
     Route: 051
     Dates: start: 20120209, end: 20120215

REACTIONS (2)
  - PYREXIA [None]
  - BLOOD CREATININE INCREASED [None]
